FAERS Safety Report 13742012 (Version 2)
Quarter: 2017Q3

REPORT INFORMATION
  Report Type: Spontaneous
  Country: US (occurrence: US)
  Receive Date: 20170711
  Receipt Date: 20170720
  Transmission Date: 20171127
  Serious: Yes (Hospitalization)
  Sender: FDA-Public Use
  Company Number: US-BAUSCH-BL-2017-020798

PATIENT
  Sex: Male
  Weight: 77.18 kg

DRUGS (1)
  1. XIFAXAN [Suspect]
     Active Substance: RIFAXIMIN
     Indication: HEPATIC ENCEPHALOPATHY
     Dosage: COUPLE OF MONTHS PRIOR TO THIS REPORT
     Route: 065
     Dates: start: 201705

REACTIONS (1)
  - Biliary tract disorder [Unknown]
